FAERS Safety Report 12226823 (Version 3)
Quarter: 2016Q3

REPORT INFORMATION
  Report Type: Report from Study
  Country: US (occurrence: US)
  Receive Date: 20160331
  Receipt Date: 20160728
  Transmission Date: 20161109
  Serious: No
  Sender: FDA-Public Use
  Company Number: PHHY2015US041041

PATIENT
  Age: 53 Year
  Sex: Female

DRUGS (1)
  1. GILENYA [Suspect]
     Active Substance: FINGOLIMOD HYDROCHLORIDE
     Indication: MULTIPLE SCLEROSIS
     Route: 048

REACTIONS (2)
  - Herpes zoster [Unknown]
  - Lipoma [Not Recovered/Not Resolved]

NARRATIVE: CASE EVENT DATE: 20140422
